FAERS Safety Report 7356236-3 (Version None)
Quarter: 2011Q1

REPORT INFORMATION
  Report Type: 
  Country: None (occurrence: None)
  Receive Date: 20110316
  Receipt Date: 20100909
  Transmission Date: 20110831
  Serious: Yes (Hospitalization, Other)
  Sender: FDA-Public Use
  Company Number: US-BAYER-201014359NA

PATIENT
  Sex: Female
  Weight: 124.72 kg

DRUGS (10)
  1. LORTAB [Concomitant]
     Indication: URINARY TRACT INFECTION
     Dosage: 1 TAB EVERY 4-6 HOURS AS NEEDED
  2. AMITRIPTLINE HYDROCHLORIDE TAB [Concomitant]
     Indication: MIGRAINE
     Route: 065
     Dates: start: 20010101, end: 20060101
  3. ELAVIL [Concomitant]
     Route: 065
  4. PREDNISONE [Concomitant]
     Dosage: UNK
     Dates: start: 20060109
  5. YASMIN [Suspect]
     Indication: PREMENSTRUAL SYNDROME
  6. ZITHROMAX [Concomitant]
     Dosage: UNK
     Dates: start: 20060109
  7. YASMIN [Suspect]
     Indication: CONTRACEPTION
     Dosage: AS USED DOSE: UNK
     Route: 048
     Dates: start: 20020101, end: 20061001
  8. AMERGE [Concomitant]
     Indication: MIGRAINE
     Route: 065
  9. MAXALT [Concomitant]
     Route: 065
  10. CIPROFLOXACIN [Concomitant]
     Indication: URINARY TRACT INFECTION
     Dosage: 750 MG, BID

REACTIONS (4)
  - ABDOMINAL PAIN [None]
  - NAUSEA [None]
  - CHOLELITHIASIS [None]
  - ABDOMINAL PAIN UPPER [None]
